FAERS Safety Report 9554555 (Version 2)
Quarter: 2013Q4

REPORT INFORMATION
  Report Type: Spontaneous
  Country: US (occurrence: US)
  Receive Date: 20130925
  Receipt Date: 20131015
  Transmission Date: 20140711
  Serious: No
  Sender: FDA-Public Use
  Company Number: US-009507513-1309USA012175

PATIENT
  Age: 75 Year
  Sex: Female
  Weight: 65.76 kg

DRUGS (2)
  1. CLARITIN [Suspect]
     Indication: RHINORRHOEA
     Dosage: 10 MG, QD
     Route: 048
     Dates: start: 20130701, end: 20130712
  2. CLARITIN [Suspect]
     Indication: SNEEZING

REACTIONS (1)
  - Drug ineffective [Unknown]
